FAERS Safety Report 18788818 (Version 3)
Quarter: 2021Q2

REPORT INFORMATION
  Report Type: Report from Study
  Country: GB (occurrence: GB)
  Receive Date: 20210126
  Receipt Date: 20210420
  Transmission Date: 20210717
  Serious: Yes (Other)
  Sender: FDA-Public Use
  Company Number: GB-MYLANLABS-2021M1003859

PATIENT
  Age: 44 Year
  Sex: Female

DRUGS (12)
  1. DOCETAXEL. [Suspect]
     Active Substance: DOCETAXEL
     Dosage: 100 MILLIGRAM, Q3W
     Route: 042
     Dates: start: 20150923, end: 20151126
  2. PERTUZUMAB. [Suspect]
     Active Substance: PERTUZUMAB
     Indication: BREAST CANCER METASTATIC
     Dosage: 420 MILLIGRAM, Q3W
     Route: 042
     Dates: start: 20150922
  3. DENOSUMAB [Concomitant]
     Active Substance: DENOSUMAB
     Indication: PRODUCT USED FOR UNKNOWN INDICATION
     Dosage: 120 MILLIGRAM, MONTHLY
     Route: 058
     Dates: start: 20150922
  4. ZOLADEX [Concomitant]
     Active Substance: GOSERELIN ACETATE
     Indication: PRODUCT USED FOR UNKNOWN INDICATION
     Dosage: 3.6 MILLIGRAM, Q28D
     Route: 058
     Dates: start: 20160307
  5. LETROZOLE. [Suspect]
     Active Substance: LETROZOLE
     Indication: BREAST CANCER METASTATIC
     Dosage: 2.5 MILLIGRAM, QD
     Route: 048
     Dates: start: 20160725, end: 20200203
  6. ANASTROZOLE. [Suspect]
     Active Substance: ANASTROZOLE
     Indication: BREAST CANCER METASTATIC
     Dosage: UNK, QD
     Route: 048
     Dates: start: 20160516, end: 20160607
  7. DOCETAXEL. [Suspect]
     Active Substance: DOCETAXEL
     Indication: PRODUCT USED FOR UNKNOWN INDICATION
     Dosage: 70 MILLIGRAM, Q2W
     Route: 042
     Dates: start: 20151217, end: 20151218
  8. LETROZOLE. [Suspect]
     Active Substance: LETROZOLE
     Dosage: 2.5 MILLIGRAM, QD
     Route: 048
     Dates: start: 20160404, end: 20160509
  9. EXEMESTANE. [Suspect]
     Active Substance: EXEMESTANE
     Dosage: 25 MILLIGRAM, QD
     Route: 048
     Dates: start: 20160622, end: 20160718
  10. TRASTUZUMAB. [Suspect]
     Active Substance: TRASTUZUMAB
     Indication: BREAST CANCER METASTATIC
     Dosage: 600 MILLIGRAM, Q3W
     Route: 058
     Dates: start: 20150922
  11. DOCETAXEL. [Suspect]
     Active Substance: DOCETAXEL
     Dosage: 70 MILLIGRAM, Q3W
     Route: 042
     Dates: start: 20150922
  12. EXEMESTANE. [Suspect]
     Active Substance: EXEMESTANE
     Indication: BREAST CANCER METASTATIC
     Dosage: 25 MILLIGRAM, QD
     Route: 048
     Dates: start: 202003

REACTIONS (12)
  - Rash [Recovered/Resolved]
  - Oral herpes [Recovered/Resolved]
  - Arthralgia [Not Recovered/Not Resolved]
  - Neuropathy peripheral [Recovered/Resolved]
  - Peripheral swelling [Recovered/Resolved]
  - Eczema [Recovering/Resolving]
  - Haemorrhoids [Recovered/Resolved]
  - Mouth ulceration [Recovered/Resolved]
  - Headache [Recovered/Resolved]
  - Insomnia [Not Recovered/Not Resolved]
  - Tendonitis [Recovered/Resolved]
  - Musculoskeletal chest pain [Recovered/Resolved]

NARRATIVE: CASE EVENT DATE: 20151026
